FAERS Safety Report 19754532 (Version 1)
Quarter: 2021Q3

REPORT INFORMATION
  Report Type: Spontaneous
  Country: US (occurrence: US)
  Receive Date: 20210824
  Receipt Date: 20210824
  Transmission Date: 20211014
  Serious: Yes (Death)
  Sender: FDA-Public Use
  Company Number: None

PATIENT
  Age: 65 Year
  Sex: Female

DRUGS (2)
  1. AMBRISENTAN 10MG CIPLA USA [Suspect]
     Active Substance: AMBRISENTAN
     Indication: PULMONARY ARTERIAL HYPERTENSION
     Route: 048
     Dates: start: 20191205, end: 20210521
  2. SILDENAFIL CITRATE 20MG AUROBINDO PHARMA [Suspect]
     Active Substance: SILDENAFIL CITRATE
     Route: 048
     Dates: end: 20210521

REACTIONS (1)
  - Death [None]

NARRATIVE: CASE EVENT DATE: 20210521
